FAERS Safety Report 18717865 (Version 1)
Quarter: 2021Q1

REPORT INFORMATION
  Report Type: Spontaneous
  Country: US (occurrence: US)
  Receive Date: 20210108
  Receipt Date: 20210108
  Transmission Date: 20210419
  Serious: Yes (Hospitalization)
  Sender: FDA-Public Use
  Company Number: None

PATIENT
  Sex: Female

DRUGS (3)
  1. XELJANZ [Suspect]
     Active Substance: TOFACITINIB CITRATE
     Indication: PSORIASIS
     Route: 048
     Dates: start: 20201214
  2. AMOXICILLIN. [Concomitant]
     Active Substance: AMOXICILLIN
  3. HYDROCODO/APAP [Concomitant]

REACTIONS (1)
  - Lower limb fracture [None]
